APPROVED DRUG PRODUCT: SODIUM IODIDE I 131
Active Ingredient: SODIUM IODIDE I-131
Strength: 250-1000mCi
Dosage Form/Route: SOLUTION;ORAL
Application: A213615 | Product #001
Applicant: CARDINAL HEALTH 414 LLC
Approved: Jun 12, 2025 | RLD: No | RS: No | Type: DISCN